FAERS Safety Report 6582506-2 (Version None)
Quarter: 2010Q1

REPORT INFORMATION
  Report Type: 
  Country: None (occurrence: None)
  Receive Date: 20100212
  Receipt Date: 20100212
  Transmission Date: 20100710
  Serious: Yes (Life-Threatening)
  Sender: FDA-Public Use
  Company Number: None

PATIENT
  Age: 73 Year
  Sex: Male
  Weight: 96 kg

DRUGS (1)
  1. VANCOMYCIN [Suspect]
     Indication: CELLULITIS
     Dosage: 1500 MG ONCE IV
     Route: 042
     Dates: start: 20091205, end: 20100105

REACTIONS (3)
  - BRONCHOSPASM [None]
  - DYSPNOEA [None]
  - TACHYCARDIA [None]
